FAERS Safety Report 11849429 (Version 1)
Quarter: 2015Q4

REPORT INFORMATION
  Report Type: Spontaneous
  Country: US (occurrence: US)
  Receive Date: 20151218
  Receipt Date: 20151218
  Transmission Date: 20160305
  Serious: Yes (Other)
  Sender: FDA-Public Use
  Company Number: US-MYLANLABS-2015M1044219

PATIENT

DRUGS (2)
  1. BENADRYL [Concomitant]
     Active Substance: DIPHENHYDRAMINE HYDROCHLORIDE
     Dosage: UNK, ONCE
     Dates: start: 20151206, end: 20151206
  2. EPIPEN JR [Suspect]
     Active Substance: EPINEPHRINE
     Indication: HYPERSENSITIVITY
     Dosage: 0.15 MG, 2X
     Route: 030
     Dates: start: 20151206, end: 20151206

REACTIONS (2)
  - Injection site laceration [Recovering/Resolving]
  - Scratch [Not Recovered/Not Resolved]

NARRATIVE: CASE EVENT DATE: 20151206
